FAERS Safety Report 7876150-4 (Version None)
Quarter: 2011Q4

REPORT INFORMATION
  Report Type: 
  Country: None (occurrence: None)
  Receive Date: 20111031
  Receipt Date: 20111021
  Transmission Date: 20120403
  Serious: Yes (Other)
  Sender: FDA-Public Use
  Company Number: AU-ELI_LILLY_AND_COMPANY-AU201108003944

PATIENT
  Sex: Male

DRUGS (3)
  1. ASPIRIN [Concomitant]
     Indication: STENT PLACEMENT
  2. EFFIENT [Suspect]
     Indication: STENT PLACEMENT
  3. PROTON PUMP INHIBITORS [Concomitant]
     Indication: GASTRIC DISORDER

REACTIONS (1)
  - PANCREATITIS [None]
